FAERS Safety Report 7267739-4 (Version None)
Quarter: 2011Q1

REPORT INFORMATION
  Report Type: 
  Country: None (occurrence: None)
  Receive Date: 20110201
  Receipt Date: 20110128
  Transmission Date: 20110831
  Serious: Yes (Death, Hospitalization)
  Sender: FDA-Public Use
  Company Number: US-ROCHE-755543

PATIENT
  Sex: Female
  Weight: 70 kg

DRUGS (26)
  1. CARBOPLATIN [Suspect]
     Indication: GLIOBLASTOMA MULTIFORME
     Dosage: DRUG: CARBOPLATIN 4 AUC.
     Route: 042
     Dates: start: 20110112
  2. DECADRON [Concomitant]
  3. ERYTHROMYCIN [Concomitant]
     Dosage: FREQUENCY: EVERY HS. DRUG REPORTED: ERYTHROMYCIN OPTHALMIC OINT LEYE
  4. GLIPIZIDE [Concomitant]
     Dosage: FREQUENCY: EVERY DAY.
     Route: 048
  5. CIPROFLOXACIN [Concomitant]
     Route: 048
  6. IRINOTECAN HCL [Suspect]
     Indication: GLIOBLASTOMA MULTIFORME
     Dosage: DRUG: IRINOTECAN 125 MG/M2
     Route: 065
     Dates: start: 20110112
  7. ASA [Concomitant]
     Dosage: FREQUENCY: DAILY
  8. VITAMIN B1 TAB [Concomitant]
     Route: 030
  9. COZAAR [Concomitant]
     Dosage: EVERY NIGHT
     Route: 048
  10. FEXOFENADINE HCL [Concomitant]
     Dosage: FREQUENCY: EVERY HS.
  11. RITALIN [Concomitant]
     Route: 048
  12. PAXIL [Concomitant]
     Dosage: FREQUENCY: EVERY HS
     Route: 048
  13. KEPPRA [Concomitant]
     Dosage: FREQUENCY: EVERY MORNING. DOSE: 2250 MG EVERY NIGHT.
  14. SYNTHROID [Concomitant]
     Dosage: FREQUENCY: DAILY.
     Route: 048
  15. ALBUTEROL [Concomitant]
     Dosage: DOSE: 2 PUFF
  16. LIPITOR [Concomitant]
     Dosage: FREQUENCY: HS
     Route: 048
  17. OPTIVAR [Concomitant]
     Dosage: DRUG REPORTED: OPTIVAR IGTTBOTHCYES
  18. NEXIUM [Concomitant]
     Dosage: FREQUENCY: DAILY
     Route: 048
  19. INSULIN [Concomitant]
     Dosage: DRUG REORTED: INSULIN REGULAR SLIDING SCALE.
  20. MECLIZINE [Concomitant]
     Route: 048
  21. POLYETHYLENE GLYCOL [Concomitant]
     Dosage: DOSE: 400 OPTHALMIC PRN.
  22. BACTRIM [Concomitant]
     Route: 048
  23. BEVACIZUMAB [Suspect]
     Indication: GLIOBLASTOMA MULTIFORME
     Dosage: DRUG: BEVACIZUMAB 10 MG/KG
     Route: 065
     Dates: start: 20110112
  24. FLUTICASONE PROPIONATE [Concomitant]
     Dosage: DOSE: 2 PUFF AS NECESSARY.
  25. POTASSIUM CHLORIDE [Concomitant]
     Dosage: DOSE: 20 MEQ. FREQUENCY: DAILY
  26. PROPYLENE GLYCOL [Concomitant]
     Dosage: DOSE: 400 OPTHALMIC PRN.

REACTIONS (7)
  - FEBRILE NEUTROPENIA [None]
  - PNEUMONIA [None]
  - HAEMOGLOBIN DECREASED [None]
  - THROMBOCYTOPENIA [None]
  - PULMONARY EMBOLISM [None]
  - HYPOCALCAEMIA [None]
  - URINARY TRACT INFECTION [None]
